FAERS Safety Report 9443936 (Version 2)
Quarter: 2014Q1

REPORT INFORMATION
  Report Type: Report from Study
  Country: JP (occurrence: JP)
  Receive Date: 20130807
  Receipt Date: 20140110
  Transmission Date: 20141002
  Serious: Yes (Life-Threatening, Hospitalization)
  Sender: FDA-Public Use
  Company Number: JP-ROCHE-1244294

PATIENT
  Age: 83 Year
  Sex: Female
  Weight: 44 kg

DRUGS (8)
  1. METHOXY POLYETHYLENE GLYCOL-EPOETIN BETA [Suspect]
     Indication: NEPHROGENIC ANAEMIA
     Route: 058
     Dates: start: 20130530, end: 20130801
  2. METHOXY POLYETHYLENE GLYCOL-EPOETIN BETA [Suspect]
     Route: 058
     Dates: start: 20130829
  3. BLOPRESS [Concomitant]
     Indication: HYPERTENSION
     Route: 048
  4. ARTIST [Concomitant]
     Indication: HYPERTENSION
     Route: 048
  5. CONIEL [Concomitant]
     Indication: HYPERTENSION
     Route: 048
  6. LIPOVAS [Concomitant]
     Indication: HYPERTENSION
     Route: 048
  7. ARGAMATE [Concomitant]
     Route: 048
     Dates: start: 20121206
  8. URSO [Concomitant]
     Indication: PROPHYLAXIS
     Route: 048
     Dates: start: 20130710

REACTIONS (1)
  - Bile duct stone [Recovered/Resolved]
